FAERS Safety Report 7220560-5 (Version None)
Quarter: 2011Q1

REPORT INFORMATION
  Report Type: 
  Country: None (occurrence: None)
  Receive Date: 20110111
  Receipt Date: 20110107
  Transmission Date: 20110831
  Serious: Yes (Life-Threatening)
  Sender: FDA-Public Use
  Company Number: US-ABBOTT-11P-163-0695327-00

PATIENT
  Sex: Female
  Weight: 63.56 kg

DRUGS (5)
  1. SYNTHROID [Suspect]
     Dates: start: 20101111
  2. SYNTHROID [Suspect]
  3. WELLBUTRIN [Concomitant]
     Indication: DEPRESSION
  4. SYNTHROID [Suspect]
     Indication: THYROIDECTOMY
     Dates: start: 20050101, end: 20101110
  5. SYNTHROID [Suspect]
     Indication: THYROID CANCER
     Dosage: 125 MCG TO 150 MCG ALTERNATING BETWEEN BRAND AND GENERIC
     Dates: start: 19950101, end: 20030101

REACTIONS (1)
  - BLOOD THYROID STIMULATING HORMONE INCREASED [None]
